FAERS Safety Report 9871337 (Version 1)
Quarter: 2014Q1

REPORT INFORMATION
  Report Type: Report from Study
  Country: MX (occurrence: MX)
  Receive Date: 20140205
  Receipt Date: 20140205
  Transmission Date: 20141002
  Serious: Yes (Death)
  Sender: FDA-Public Use
  Company Number: PHHY2014MX014295

PATIENT
  Age: 88 Year
  Sex: Female
  Weight: 47 kg

DRUGS (3)
  1. STALEVO [Suspect]
     Indication: PARKINSON^S DISEASE
     Dosage: TWO TABLETS (200/50/12.5MG) DAILY
     Route: 048
     Dates: start: 20120916
  2. STALEVO [Suspect]
     Dosage: ONE TABLET (200/100/25MG) DAILY
     Route: 048
  3. STALEVO [Suspect]
     Dosage: HALF TABLET (200/100/25MG) DAILY
     Route: 048

REACTIONS (4)
  - Death [Fatal]
  - Hypertension [Unknown]
  - Wrong technique in drug usage process [Unknown]
  - Incorrect dose administered [Unknown]
